FAERS Safety Report 19120128 (Version 1)
Quarter: 2021Q2

REPORT INFORMATION
  Report Type: Spontaneous
  Country: US (occurrence: US)
  Receive Date: 20210412
  Receipt Date: 20210412
  Transmission Date: 20210717
  Serious: No
  Sender: FDA-Public Use
  Company Number: US-SA-2021SA114832

PATIENT
  Sex: Male

DRUGS (6)
  1. ECONAZOLE NITRATE. [Concomitant]
     Active Substance: ECONAZOLE NITRATE
  2. HYDROCORTISONE. [Concomitant]
     Active Substance: HYDROCORTISONE
  3. DUPIXENT [Suspect]
     Active Substance: DUPILUMAB
     Indication: DERMATITIS ATOPIC
     Route: 058
     Dates: start: 20190730
  4. ALLEGRA ALLERGY [Concomitant]
     Active Substance: FEXOFENADINE HYDROCHLORIDE
  5. DIPHENHYDRAMINE HCL [Concomitant]
     Active Substance: DIPHENHYDRAMINE HYDROCHLORIDE
  6. CLOBETASOL PROPIONATE. [Concomitant]
     Active Substance: CLOBETASOL PROPIONATE

REACTIONS (10)
  - Dehydration [Unknown]
  - Pruritus [Unknown]
  - Hyperhidrosis [Unknown]
  - Therapy interrupted [Unknown]
  - Feeling hot [Unknown]
  - Skin exfoliation [Unknown]
  - Dry skin [Unknown]
  - COVID-19 [Recovered/Resolved]
  - Dermatitis atopic [Unknown]
  - Skin fissures [Unknown]

NARRATIVE: CASE EVENT DATE: 2020
